FAERS Safety Report 10165633 (Version 1)
Quarter: 2014Q2

REPORT INFORMATION
  Report Type: Spontaneous
  Country: US (occurrence: US)
  Receive Date: 20140510
  Receipt Date: 20140510
  Transmission Date: 20141212
  Serious: No
  Sender: FDA-Public Use
  Company Number: US-BRISTOL-MYERS SQUIBB COMPANY-19875988

PATIENT
  Age: 79 Year
  Sex: Female
  Weight: 81.63 kg

DRUGS (2)
  1. BYDUREON [Suspect]
     Route: 058
     Dates: start: 201301
  2. LANTUS [Concomitant]
     Dosage: 40 UNITS DAILY ?CHANGED TO 38 UNITS DAILY

REACTIONS (2)
  - Injection site haemorrhage [Unknown]
  - Injection site bruising [Unknown]
